FAERS Safety Report 7417529-4 (Version None)
Quarter: 2011Q2

REPORT INFORMATION
  Report Type: 
  Country: None (occurrence: None)
  Receive Date: 20110412
  Receipt Date: 20110412
  Transmission Date: 20111010
  Serious: Yes (Other)
  Sender: FDA-Public Use
  Company Number: None

PATIENT
  Age: 35 Year
  Sex: Female
  Weight: 83.0083 kg

DRUGS (1)
  1. POVIDONE IODINE [Suspect]
     Indication: FUNGAL INFECTION
     Dosage: 7 DAILY VAG
     Route: 067
     Dates: start: 20110402, end: 20110402

REACTIONS (3)
  - ANTEPARTUM HAEMORRHAGE [None]
  - DRUG EXPOSURE DURING PREGNANCY [None]
  - INTRA-UTERINE DEATH [None]
